FAERS Safety Report 11676000 (Version 2)
Quarter: 2016Q1

REPORT INFORMATION
  Report Type: Spontaneous
  Country: AT (occurrence: AT)
  Receive Date: 20151028
  Receipt Date: 20160106
  Transmission Date: 20160525
  Serious: No
  Sender: FDA-Public Use
  Company Number: AT-TEVA-603031ISR

PATIENT
  Age: 92 Year
  Sex: Female

DRUGS (19)
  1. MIRTABENE [Suspect]
     Active Substance: MIRTAZAPINE
     Route: 065
     Dates: start: 20150805, end: 20150805
  2. HYDAL RETARD [Suspect]
     Active Substance: HYDROMORPHONE HYDROCHLORIDE
     Route: 048
     Dates: start: 20150803, end: 20150803
  3. HYDAL RETARD [Suspect]
     Active Substance: HYDROMORPHONE HYDROCHLORIDE
     Route: 048
     Dates: start: 20150804
  4. LANITOP [Concomitant]
     Active Substance: METILDIGOXIN
     Dosage: SINCE A LONG TIME
     Route: 048
  5. ACETYLSALICYL ACID [Concomitant]
     Dosage: SINCE A LONG TIME
     Route: 048
  6. HYDAL INJEKTIONSL?SUNG [Suspect]
     Active Substance: HYDROMORPHONE HYDROCHLORIDE
     Route: 048
     Dates: start: 20150803, end: 20150804
  7. COSOPT [Concomitant]
     Active Substance: DORZOLAMIDE HYDROCHLORIDE\TIMOLOL MALEATE
     Dosage: SINE A LONG TIME
     Route: 065
  8. XARELTO [Concomitant]
     Active Substance: RIVAROXABAN
     Dosage: SINCE A LONG TIME
     Route: 048
  9. SERACTIL FORTE [Concomitant]
     Route: 065
     Dates: start: 20150802, end: 20150803
  10. SERACTIL FORTE [Concomitant]
     Route: 065
     Dates: start: 20150806, end: 20150807
  11. BURONIL [Concomitant]
     Active Substance: MELPERONE HYDROCHLORIDE
     Route: 048
     Dates: start: 20150801, end: 20150801
  12. MIRTABENE [Suspect]
     Active Substance: MIRTAZAPINE
     Route: 065
     Dates: start: 20150801, end: 20150804
  13. SERACTIL FORTE [Concomitant]
     Route: 065
     Dates: start: 20150731, end: 20150731
  14. LASIX [Concomitant]
     Active Substance: FUROSEMIDE
     Dosage: SINCE A LONG TIME
     Route: 048
  15. MIRTABENE [Suspect]
     Active Substance: MIRTAZAPINE
     Route: 048
     Dates: start: 20150731, end: 20150731
  16. SERACTIL FORTE [Concomitant]
     Route: 065
     Dates: start: 20150801, end: 20150801
  17. BURONIL [Concomitant]
     Active Substance: MELPERONE HYDROCHLORIDE
     Route: 048
     Dates: start: 20150802
  18. CALCIUM GLYCEROPHOSPHATE\CELLULOSE\POLYETHYLENE GLYCOL\SACCHARIN SODIUM\SODIUM HYDROXIDE\SODIUM LAURYL SULFATE\SODIUM MAGNESIUM SILICATE\SODIUM MONOFLUOROPHOSPHATE\SORBITOL\WATER [Concomitant]
     Active Substance: CALCIUM GLYCEROPHOSPHATE\POLYETHYLENE GLYCOLS\POWDERED CELLULOSE\SACCHARIN SODIUM DIHYDRATE\SODIUM HYDROXIDE\SODIUM LAURYL SULFATE\SODIUM MAGNESIUM SILICATE\SODIUM MONOFLUOROPHOSPHATE\SORBITOL\WATER
     Dosage: SINCE A LONG TIME
  19. METOPROLOL. [Concomitant]
     Active Substance: METOPROLOL
     Dosage: SINCE A LONG TIME
     Route: 048

REACTIONS (3)
  - Back pain [Recovered/Resolved]
  - Insomnia [Recovered/Resolved]
  - Mobility decreased [Recovered/Resolved]

NARRATIVE: CASE EVENT DATE: 20150805
